FAERS Safety Report 7383447-3 (Version None)
Quarter: 2011Q1

REPORT INFORMATION
  Report Type: 
  Country: None (occurrence: None)
  Receive Date: 20110330
  Receipt Date: 20110321
  Transmission Date: 20110831
  Serious: Yes (Other)
  Sender: FDA-Public Use
  Company Number: SI-JNJFOC-20110309443

PATIENT
  Age: 34 Year
  Sex: Female

DRUGS (2)
  1. FEROLET [Concomitant]
     Route: 065
  2. INVEGA [Suspect]
     Indication: SCHIZOPHRENIA
     Route: 048

REACTIONS (1)
  - JOINT SWELLING [None]
